FAERS Safety Report 11174554 (Version 2)
Quarter: 2018Q2

REPORT INFORMATION
  Report Type: Spontaneous
  Country: US (occurrence: US)
  Receive Date: 20150609
  Receipt Date: 20180611
  Transmission Date: 20180711
  Serious: Yes (Death, Other)
  Sender: FDA-Public Use
  Company Number: US-AMGEN-USASP2015040264

PATIENT
  Age: 27 Year
  Sex: Male

DRUGS (2)
  1. BLINCYTO [Suspect]
     Active Substance: BLINATUMOMAB
     Indication: ACUTE LYMPHOCYTIC LEUKAEMIA RECURRENT
     Dosage: 18 MUG, UNK
     Route: 065
     Dates: start: 20150423
  2. ACYCLOVIR. [Concomitant]
     Active Substance: ACYCLOVIR
     Dosage: UNK

REACTIONS (12)
  - Malignant neoplasm progression [Unknown]
  - Hypotension [Recovered/Resolved]
  - Heart rate decreased [Recovered/Resolved]
  - Tachycardia [Recovered/Resolved]
  - Body temperature abnormal [Unknown]
  - Chills [Recovered/Resolved]
  - Pancreatitis acute [Unknown]
  - Colitis [Unknown]
  - Medication error [Unknown]
  - Pyrexia [Recovered/Resolved]
  - Appendicitis [Recovering/Resolving]
  - Death [Fatal]

NARRATIVE: CASE EVENT DATE: 2015
